FAERS Safety Report 9660971 (Version 3)
Quarter: 2014Q1

REPORT INFORMATION
  Report Type: Spontaneous
  Country: US (occurrence: US)
  Receive Date: 20131031
  Receipt Date: 20140217
  Transmission Date: 20141002
  Serious: Yes (Other)
  Sender: FDA-Public Use
  Company Number: US-UCBSA-101729

PATIENT
  Age: 48 Year
  Sex: Female
  Weight: 58.9 kg

DRUGS (5)
  1. CIMZIA [Suspect]
     Indication: CROHN^S DISEASE
     Dates: start: 201208, end: 20130530
  2. PURINETHAL [Concomitant]
     Indication: CROHN^S DISEASE
     Route: 048
     Dates: start: 1988
  3. DEXILANT [Concomitant]
     Indication: GASTROOESOPHAGEAL REFLUX DISEASE
     Route: 048
     Dates: start: 2012
  4. VALIUM [Concomitant]
     Dosage: 5
  5. HYDROCODONE [Concomitant]

REACTIONS (1)
  - Anal cancer [Recovered/Resolved]
